FAERS Safety Report 8770324 (Version 1)
Quarter: 2012Q4

REPORT INFORMATION
  Report Type: 
  Country: US (occurrence: US)
  Receive Date: 20120906
  Receipt Date: 20120906
  Transmission Date: 20130627
  Serious: Yes (Other)
  Sender: FDA-Public Use
  Company Number: US-JNJFOC-20120900966

PATIENT
  Sex: Female
  Weight: 63 kg

DRUGS (1)
  1. LEVAQUIN [Suspect]
     Indication: PYREXIA
     Route: 048
     Dates: start: 20090323

REACTIONS (2)
  - Pneumonia [Recovering/Resolving]
  - Nightmare [Unknown]
